FAERS Safety Report 9664726 (Version 2)
Quarter: 2014Q2

REPORT INFORMATION
  Report Type: Spontaneous
  Country: US (occurrence: US)
  Receive Date: 20131101
  Receipt Date: 20140418
  Transmission Date: 20141212
  Serious: Yes (Hospitalization)
  Sender: FDA-Public Use
  Company Number: US-B.I. PHARMACEUTICALS,INC./RIDGEFIELD-2013-BI-34741BP

PATIENT
  Age: 83 Year
  Sex: Female
  Weight: 49.9 kg

DRUGS (16)
  1. PRADAXA [Suspect]
     Indication: ATRIAL FIBRILLATION
     Dosage: 150 MG
     Route: 048
     Dates: start: 20110913, end: 201201
  2. SEPTRA DS [Concomitant]
     Route: 048
  3. PACERONE [Concomitant]
     Dosage: 200 MG
     Route: 048
  4. COREG [Concomitant]
     Dosage: 6.25 MG
     Route: 048
  5. VASOTEC [Concomitant]
     Dosage: 5 MG
     Route: 048
  6. LASIX [Concomitant]
     Dosage: 20 MG
     Route: 048
  7. KLONOPIN [Concomitant]
     Dosage: 1 MG
     Route: 048
  8. NORCO [Concomitant]
     Route: 065
  9. LUNESTA [Concomitant]
     Dosage: 3 MG
     Route: 048
  10. ZOFRAN [Concomitant]
     Route: 048
  11. SENOKOT S [Concomitant]
     Route: 048
  12. IMODIUM [Concomitant]
     Route: 048
  13. LEVOXYL [Concomitant]
     Dosage: 0.025 MG
     Route: 048
  14. FEROSUL [Concomitant]
     Dosage: 975 MG
     Route: 048
  15. K-DUR [Concomitant]
     Dosage: 40 MEQ
     Route: 048
  16. EFFEXOR XR [Concomitant]
     Dosage: 75 MG
     Route: 048

REACTIONS (10)
  - Gastrointestinal haemorrhage [Unknown]
  - Coagulopathy [Unknown]
  - Upper gastrointestinal haemorrhage [Unknown]
  - Haemorrhagic anaemia [Unknown]
  - Renal haemorrhage [Unknown]
  - Clostridium difficile colitis [Unknown]
  - Stress cardiomyopathy [Recovered/Resolved]
  - Renal failure acute [Unknown]
  - Anaemia [Unknown]
  - Renal failure acute [Unknown]
